FAERS Safety Report 7919355-6 (Version None)
Quarter: 2011Q4

REPORT INFORMATION
  Report Type: 
  Country: None (occurrence: None)
  Receive Date: 20111115
  Receipt Date: 20111115
  Transmission Date: 20120403
  Serious: No
  Sender: FDA-Public Use
  Company Number: None

PATIENT
  Sex: Female
  Weight: 109 kg

DRUGS (19)
  1. ATARAX (PRE-MED) [Concomitant]
  2. DEXILANT [Concomitant]
  3. PEPCID (PRE-MED) [Concomitant]
  4. DOXORUBICIN HCL [Suspect]
     Dosage: 130 MG
     Dates: end: 20111102
  5. NEULASTA [Suspect]
     Dosage: 6 MG
     Dates: end: 20111103
  6. FISH OIL [Concomitant]
  7. ZOCOR [Concomitant]
  8. CARBOPLATIN [Suspect]
     Dosage: 2700 MG
     Dates: end: 20110929
  9. TAXOL [Suspect]
     Dosage: 1521 MG
     Dates: end: 20111014
  10. DEXAMETHASONE [Suspect]
     Dosage: 108 MG
     Dates: end: 20111102
  11. ALOXI (PRE-MED) [Concomitant]
  12. BENTYL [Concomitant]
  13. EMEND (PRE-MED) [Concomitant]
  14. BENADRYL (PRE-MED) [Concomitant]
  15. CYMBALTA [Concomitant]
  16. VITAMIN D [Concomitant]
  17. CYCLOPHOSPHAMIDE [Suspect]
     Dosage: 1296 MG
     Dates: end: 20111102
  18. ATENOLOL [Concomitant]
  19. MULTI-VITAMIN [Concomitant]

REACTIONS (2)
  - NEUTROPENIA [None]
  - DYSPNOEA EXERTIONAL [None]
